FAERS Safety Report 21001746 (Version 1)
Quarter: 2022Q2

REPORT INFORMATION
  Report Type: Spontaneous
  Country: US (occurrence: US)
  Receive Date: 20220624
  Receipt Date: 20220624
  Transmission Date: 20220721
  Serious: No
  Sender: FDA-Public Use
  Company Number: US-BioHaven Pharmaceuticals-2022BHV001159

PATIENT
  Age: 84 Year
  Sex: Female
  Weight: 52.210 kg

DRUGS (1)
  1. NURTEC ODT [Suspect]
     Active Substance: RIMEGEPANT SULFATE
     Indication: Tension headache
     Dosage: 1 TABLET / TOOK THREE OF THEM / FIRST DOSE OF NURTEC ON 15-APR-2022, AND DOES NOT REMEMBER IF SHE TO
     Route: 048
     Dates: start: 20220415, end: 20220417

REACTIONS (2)
  - Off label use [Not Recovered/Not Resolved]
  - Condition aggravated [Not Recovered/Not Resolved]

NARRATIVE: CASE EVENT DATE: 20220415
